FAERS Safety Report 4935843-9 (Version None)
Quarter: 2006Q1

REPORT INFORMATION
  Report Type: 
  Country: None (occurrence: None)
  Receive Date: 20060307
  Receipt Date: 20060206
  Transmission Date: 20060701
  Serious: Yes (Death, Life-Threatening)
  Sender: FDA-Public Use
  Company Number: JP-AVENTIS-200610411JP

PATIENT
  Age: 75 Year
  Sex: Male

DRUGS (18)
  1. AMARYL [Suspect]
     Indication: DIABETES MELLITUS
     Route: 048
     Dates: start: 20060201, end: 20060204
  2. PARIET [Concomitant]
     Route: 048
  3. PURSENNID [Concomitant]
  4. PANTOSIN [Concomitant]
     Dosage: DOSE: 3 PACKS/DAY
     Route: 048
  5. PREDNISOLONE [Concomitant]
     Route: 048
  6. PREDNISOLONE [Concomitant]
     Route: 048
  7. ALDACTONE [Concomitant]
     Route: 048
  8. ASPIRIN [Concomitant]
     Dosage: DOSE: 1 TABLET/DAY
  9. LASIX [Concomitant]
     Route: 048
  10. LASIX [Concomitant]
     Route: 042
  11. MICARDIS [Concomitant]
     Route: 048
  12. ARTIST [Concomitant]
     Route: 048
  13. URINORM [Concomitant]
     Dosage: DOSE: 3 TABLET/DAY
     Route: 048
  14. NICHOLIN [Concomitant]
     Route: 042
  15. SOLCOSERYL [Concomitant]
     Dosage: DOSE: 2AMPULE
     Route: 042
  16. EPOGIN [Concomitant]
     Route: 058
  17. ALBUMIN (HUMAN) [Concomitant]
     Dosage: DOSE: 2VIAL
     Route: 042
  18. ADALAT [Concomitant]
     Route: 048

REACTIONS (1)
  - HYPOGLYCAEMIA [None]
